FAERS Safety Report 8113248-X (Version None)
Quarter: 2011Q4

REPORT INFORMATION
  Report Type: 
  Country: None (occurrence: None)
  Receive Date: 20111227
  Receipt Date: 20111128
  Transmission Date: 20120403
  Serious: Yes (Other)
  Sender: FDA-Public Use
  Company Number: PHEH2011US010074

PATIENT
  Age: 52 Year
  Sex: Female

DRUGS (6)
  1. ASPIRIN [Concomitant]
  2. BACLOFEN [Concomitant]
  3. VITAMIN D [Concomitant]
  4. GILENYA [Suspect]
     Dosage: 0.5 MG, QD, ORAL
     Route: 048
     Dates: start: 20110912, end: 20111122
  5. METFORMIN HCL [Concomitant]
  6. SYNTHROID [Concomitant]

REACTIONS (2)
  - INTRAOCULAR PRESSURE INCREASED [None]
  - MACULAR OEDEMA [None]
